FAERS Safety Report 5096368-6 (Version None)
Quarter: 2006Q3

REPORT INFORMATION
  Report Type: 
  Country: None (occurrence: None)
  Receive Date: 20060830
  Receipt Date: 20060816
  Transmission Date: 20061208
  Serious: Yes (Other)
  Sender: FDA-Public Use
  Company Number: 2006RR-03461

PATIENT
  Age: 35 Year
  Sex: Female

DRUGS (1)
  1. BISACODYL TABLET 5 MG BP (BISACODYL) TABLET, 5 MG [Suspect]
     Dosage: 5 MG QD ORAL
     Route: 048

REACTIONS (2)
  - DRUG EXPOSURE DURING PREGNANCY [None]
  - LAXATIVE ABUSE [None]
